FAERS Safety Report 20775414 (Version 2)
Quarter: 2022Q2

REPORT INFORMATION
  Report Type: Report from Study
  Country: KR (occurrence: KR)
  Receive Date: 20220502
  Receipt Date: 20220517
  Transmission Date: 20220721
  Serious: Yes (Hospitalization)
  Sender: FDA-Public Use
  Company Number: KR-DSJP-DSJ-2022-114975

PATIENT
  Age: 75 Year
  Sex: Female
  Weight: 61.7 kg

DRUGS (12)
  1. AMLODIPINE\HYDROCHLOROTHIAZIDE\OLMESARTAN [Suspect]
     Active Substance: AMLODIPINE\HYDROCHLOROTHIAZIDE\OLMESARTAN
     Indication: Hypertension
     Dosage: 1 DF, QD (5/20/12.5MG)
     Route: 048
     Dates: start: 20211231, end: 20220420
  2. AMLODIPINE\HYDROCHLOROTHIAZIDE\OLMESARTAN [Suspect]
     Active Substance: AMLODIPINE\HYDROCHLOROTHIAZIDE\OLMESARTAN
     Dosage: UNK
     Route: 065
  3. LETOPRA [Concomitant]
     Indication: Gastritis
     Dosage: 1 DF, QD (10 MG)
     Route: 048
     Dates: start: 20211231
  4. DIARYL [GLIMEPIRIDE] [Concomitant]
     Indication: Diabetes mellitus
     Dosage: 1 DF, BID  (4 MG)
     Route: 048
     Dates: start: 20210730
  5. DIARYL [GLIMEPIRIDE] [Concomitant]
     Dosage: 1 DF, QD (4 MG)
     Route: 048
     Dates: start: 20210611, end: 20211230
  6. DIARYL [GLIMEPIRIDE] [Concomitant]
     Indication: Diabetes mellitus
     Dosage: 1 DF, QD (2 MG)
     Route: 048
     Dates: start: 20210611, end: 20211230
  7. GEMIGLIPTIN\METFORMIN [Concomitant]
     Active Substance: GEMIGLIPTIN\METFORMIN
     Indication: Diabetes mellitus
     Dosage: 1 DF, BID (25/500 MG)
     Route: 048
     Dates: start: 20211013
  8. OTILLEN F [Concomitant]
     Indication: Gastritis
     Dosage: 1 DF, QD
     Route: 048
     Dates: start: 20211007
  9. CELEBREX [Concomitant]
     Active Substance: CELECOXIB
     Indication: Osteoarthritis
     Dosage: 1 DF, QD (200 MG)
     Route: 048
     Dates: start: 20211007
  10. ACETAMINOPHEN\TRAMADOL [Concomitant]
     Active Substance: ACETAMINOPHEN\TRAMADOL
     Indication: Osteoarthritis
     Dosage: 1 DF, QD
     Route: 048
     Dates: start: 20211231
  11. PREDNISOLONE [Concomitant]
     Active Substance: PREDNISOLONE
     Indication: Osteoarthritis
     Dosage: 0.5 TAB, QD
     Route: 048
     Dates: start: 20211231
  12. RECOMID [Concomitant]
     Indication: Gastritis
     Dosage: 1 DF, QD (150 MG)
     Route: 048
     Dates: start: 20211231

REACTIONS (1)
  - Hyperglycaemia [Recovered/Resolved]

NARRATIVE: CASE EVENT DATE: 20220401
